FAERS Safety Report 19745682 (Version 1)
Quarter: 2021Q3

REPORT INFORMATION
  Report Type: Spontaneous
  Country: RU (occurrence: RU)
  Receive Date: 20210825
  Receipt Date: 20210825
  Transmission Date: 20211014
  Serious: Yes (Other)
  Sender: FDA-Public Use
  Company Number: RU-SA-2021SA277931

PATIENT
  Age: 72 Year
  Sex: Female
  Weight: 115 kg

DRUGS (1)
  1. APIDRA SOLOSTAR [Suspect]
     Active Substance: INSULIN GLULISINE
     Indication: TYPE 2 DIABETES MELLITUS
     Dosage: 18 IU, Q3D (3 DAYS)
     Route: 058
     Dates: start: 2018

REACTIONS (1)
  - Urticaria [Recovered/Resolved]
